FAERS Safety Report 9671877 (Version 1)
Quarter: 2013Q4

REPORT INFORMATION
  Report Type: Report from Study
  Country: CA (occurrence: CA)
  Receive Date: 20131106
  Receipt Date: 20131106
  Transmission Date: 20140711
  Serious: Yes (Hospitalization, Other)
  Sender: FDA-Public Use
  Company Number: CA-BRISTOL-MYERS SQUIBB COMPANY-19715358

PATIENT
  Age: 48 Year
  Sex: Female
  Weight: 86 kg

DRUGS (8)
  1. PACLITAXEL [Suspect]
     Indication: BREAST CANCER
     Route: 042
     Dates: start: 20130911
  2. CARBOPLATIN [Suspect]
     Indication: BREAST CANCER
     Dosage: 1 DF: 6 AUC
     Route: 042
     Dates: start: 20130911
  3. OS-CAL [Concomitant]
     Indication: PROPHYLAXIS
     Dates: start: 2004
  4. VITAMIN D [Concomitant]
     Indication: PROPHYLAXIS
     Dosage: 1 DF: 400 UNITS
     Dates: start: 2004
  5. ATIVAN [Concomitant]
     Indication: INSOMNIA
     Dates: start: 201307
  6. PEPCID [Concomitant]
     Indication: PROPHYLAXIS
     Dates: start: 20130911
  7. DECADRON [Concomitant]
     Indication: PROPHYLAXIS
     Dates: start: 20130910
  8. BENADRYL [Concomitant]
     Indication: PROPHYLAXIS
     Dates: start: 20130911

REACTIONS (1)
  - Febrile neutropenia [Recovered/Resolved]
